FAERS Safety Report 7291208-9 (Version None)
Quarter: 2011Q1

REPORT INFORMATION
  Report Type: 
  Country: None (occurrence: None)
  Receive Date: 20110214
  Receipt Date: 20110209
  Transmission Date: 20110831
  Serious: Yes (Hospitalization)
  Sender: FDA-Public Use
  Company Number: FR-PFIZER INC-2011028661

PATIENT
  Age: 80 Year
  Sex: Male

DRUGS (1)
  1. ALDACTONE [Suspect]
     Indication: OEDEMA PERIPHERAL
     Dosage: 50 MG, ALTERNATE DAY
     Route: 048
     Dates: start: 20101101, end: 20110112

REACTIONS (1)
  - VASCULAR PURPURA [None]
